FAERS Safety Report 12342656 (Version 42)
Quarter: 2019Q2

REPORT INFORMATION
  Report Type: Report from Study
  Country: CA (occurrence: CA)
  Receive Date: 20160506
  Receipt Date: 20190531
  Transmission Date: 20190711
  Serious: Yes (Hospitalization, Other)
  Sender: FDA-Public Use
  Company Number: PHHY2016CA045906

PATIENT
  Age: 75 Year
  Sex: Male

DRUGS (17)
  1. POMALIDOMIDE [Suspect]
     Active Substance: POMALIDOMIDE
     Dosage: 2 MG, UNK (21 DAY CYCLE)
     Route: 065
     Dates: start: 20181130
  2. SANDOSTATIN LAR DEPOT [Suspect]
     Active Substance: OCTREOTIDE ACETATE
     Dosage: 10 MG, Q4W (EVERY 4 WEEKS)
     Route: 030
  3. PAMIDRONATE [Suspect]
     Active Substance: PAMIDRONATE DISODIUM
     Indication: BLOOD CALCIUM INCREASED
     Dosage: 3 MG, UNK
     Route: 042
     Dates: start: 20160322
  4. BABY ASPIRIN [Concomitant]
     Active Substance: ASPIRIN
     Indication: PRODUCT USED FOR UNKNOWN INDICATION
     Route: 065
  5. SANDOSTATIN LAR DEPOT [Suspect]
     Active Substance: OCTREOTIDE ACETATE
     Dosage: 10 MG, Q4W (EVERY 4 WEEKS)
     Route: 030
  6. METOPROLOL. [Suspect]
     Active Substance: METOPROLOL
     Indication: PRODUCT USED FOR UNKNOWN INDICATION
     Dosage: UNK
     Route: 065
  7. SANDOSTATIN LAR DEPOT [Suspect]
     Active Substance: OCTREOTIDE ACETATE
     Indication: ACROMEGALY
     Dosage: 40 MG, QMO (ONCE A MONTH)
     Route: 030
     Dates: start: 20111217, end: 20160718
  8. SANDOSTATIN [Suspect]
     Active Substance: OCTREOTIDE ACETATE
     Indication: ACROMEGALY
     Dosage: UNK, ONCE/SINGLE
     Route: 058
     Dates: start: 20110902, end: 20110902
  9. EZETROL [Concomitant]
     Active Substance: EZETIMIBE
     Indication: PRODUCT USED FOR UNKNOWN INDICATION
     Dosage: UNK
     Route: 065
  10. METFORMIN [Concomitant]
     Active Substance: METFORMIN HYDROCHLORIDE
     Indication: PRODUCT USED FOR UNKNOWN INDICATION
     Dosage: UNK
     Route: 065
  11. PLAVIX [Concomitant]
     Active Substance: CLOPIDOGREL BISULFATE
     Indication: PRODUCT USED FOR UNKNOWN INDICATION
     Route: 065
  12. CEFTRIAXONE. [Concomitant]
     Active Substance: CEFTRIAXONE
     Indication: PRODUCT USED FOR UNKNOWN INDICATION
     Dosage: 2 G, QD
     Route: 042
     Dates: start: 20190419
  13. POMALIDOMIDE [Suspect]
     Active Substance: POMALIDOMIDE
     Indication: CYTOGENETIC ABNORMALITY
     Dosage: 4 MG, UNK
     Route: 065
     Dates: start: 20181005
  14. POMALIDOMIDE [Suspect]
     Active Substance: POMALIDOMIDE
     Dosage: 3 MG, UNK
     Route: 065
  15. LANTUS [Concomitant]
     Active Substance: INSULIN GLARGINE
     Indication: PRODUCT USED FOR UNKNOWN INDICATION
     Dosage: UNK
     Route: 065
  16. LIPITOR [Concomitant]
     Active Substance: ATORVASTATIN CALCIUM
     Indication: PRODUCT USED FOR UNKNOWN INDICATION
     Dosage: UNK
     Route: 065
  17. COZAAR [Concomitant]
     Active Substance: LOSARTAN POTASSIUM
     Indication: PRODUCT USED FOR UNKNOWN INDICATION
     Route: 065

REACTIONS (32)
  - Osteomyelitis [Unknown]
  - Dyspnoea [Recovered/Resolved]
  - Neutrophil count decreased [Unknown]
  - Feeling abnormal [Unknown]
  - Blood pressure increased [Unknown]
  - Blood pressure decreased [Unknown]
  - Fatigue [Not Recovered/Not Resolved]
  - Dyspnoea [Recovered/Resolved]
  - Injection site pain [Unknown]
  - Pyrexia [Unknown]
  - Swelling [Recovering/Resolving]
  - Chest pain [Recovering/Resolving]
  - Platelet count decreased [Unknown]
  - Plasma cell myeloma [Not Recovered/Not Resolved]
  - Night sweats [Unknown]
  - Sepsis [Unknown]
  - Pulmonary embolism [Unknown]
  - Bone swelling [Not Recovered/Not Resolved]
  - Fatigue [Recovered/Resolved]
  - Injection site swelling [Recovering/Resolving]
  - Dyspnoea exertional [Unknown]
  - Peripheral swelling [Recovering/Resolving]
  - Body temperature increased [Unknown]
  - Heart valve incompetence [Unknown]
  - Decreased appetite [Unknown]
  - Tremor [Unknown]
  - Hyperhidrosis [Unknown]
  - Pain [Unknown]
  - Weight decreased [Unknown]
  - Chills [Unknown]
  - Erythema [Recovering/Resolving]
  - Back pain [Unknown]

NARRATIVE: CASE EVENT DATE: 2016
